FAERS Safety Report 5766742-0 (Version None)
Quarter: 2008Q2

REPORT INFORMATION
  Report Type: 
  Country: None (occurrence: None)
  Receive Date: 20080610
  Receipt Date: 20080610
  Transmission Date: 20081010
  Serious: No
  Sender: FDA-Public Use
  Company Number: None

PATIENT
  Age: 49 Year
  Sex: Female
  Weight: 72.5755 kg

DRUGS (2)
  1. ARA C HIGH DOSE ??? [Suspect]
     Indication: ACUTE MYELOID LEUKAEMIA
     Dates: start: 20060711, end: 20060713
  2. ARA C HIGH DOSE ??? [Suspect]
     Indication: LEUKAEMIA
     Dates: start: 20060711, end: 20060713

REACTIONS (4)
  - ABASIA [None]
  - APHASIA [None]
  - DRUG TOXICITY [None]
  - GAIT DISTURBANCE [None]
